FAERS Safety Report 10055053 (Version 1)
Quarter: 2014Q2

REPORT INFORMATION
  Report Type: Spontaneous
  Country: US (occurrence: US)
  Receive Date: 20140402
  Receipt Date: 20140402
  Transmission Date: 20141212
  Serious: No
  Sender: FDA-Public Use
  Company Number: US-SA-2013SA134908

PATIENT
  Age: 43 Year
  Sex: Female

DRUGS (3)
  1. AUBAGIO [Suspect]
     Indication: MULTIPLE SCLEROSIS
     Route: 048
     Dates: start: 20130928
  2. VITAMIN D3 [Concomitant]
     Indication: NUTRITIONAL SUPPLEMENTATION
     Route: 048
     Dates: start: 20130913
  3. CLARITIN [Concomitant]
     Indication: RASH
     Route: 048
     Dates: start: 20131206, end: 20131219

REACTIONS (2)
  - Alopecia [Unknown]
  - Rash generalised [Unknown]
